FAERS Safety Report 9226715 (Version 1)
Quarter: 2013Q2

REPORT INFORMATION
  Report Type: Spontaneous
  Country: US (occurrence: None)
  Receive Date: 20130410
  Receipt Date: 20130410
  Transmission Date: 20140414
  Serious: Yes (Hospitalization)
  Sender: FDA-Public Use
  Company Number: None

PATIENT
  Age: 71 Year
  Sex: Male
  Weight: 87 kg

DRUGS (10)
  1. ASA [Suspect]
     Route: 048
  2. METFORMIN [Concomitant]
  3. ANDROGEL [Concomitant]
  4. SIMVASTATIN [Concomitant]
  5. ROPINIROLE [Concomitant]
  6. MVI [Concomitant]
  7. LOSARTAN [Concomitant]
  8. COLCRYS [Concomitant]
  9. METAMUCIL [Concomitant]
  10. HYDROCODONE/APAP [Concomitant]

REACTIONS (4)
  - Gastrointestinal haemorrhage [None]
  - Tachycardia [None]
  - Incorrect dose administered [None]
  - Blood pressure abnormal [None]
